FAERS Safety Report 7589288-6 (Version None)
Quarter: 2011Q3

REPORT INFORMATION
  Report Type: 
  Country: None (occurrence: None)
  Receive Date: 20110705
  Receipt Date: 20110628
  Transmission Date: 20111222
  Serious: Yes (Other)
  Sender: FDA-Public Use
  Company Number: CN-JNJFOC-20100607162

PATIENT
  Age: 42 Year
  Sex: Female

DRUGS (2)
  1. MICONAZOLE NITRATE [Suspect]
     Route: 067
  2. MICONAZOLE NITRATE [Suspect]
     Indication: VAGINAL INFECTION
     Route: 067
     Dates: start: 20100621, end: 20100622

REACTIONS (3)
  - ABORTION SPONTANEOUS [None]
  - VAGINAL HAEMORRHAGE [None]
  - MATERNAL EXPOSURE DURING PREGNANCY [None]
